FAERS Safety Report 9933972 (Version 1)
Quarter: 2014Q1

REPORT INFORMATION
  Report Type: Report from Study
  Country: US (occurrence: US)
  Receive Date: 20140228
  Receipt Date: 20140228
  Transmission Date: 20141002
  Serious: No
  Sender: FDA-Public Use
  Company Number: US-ABBVIE-14P-163-1187856-00

PATIENT
  Sex: Male
  Weight: 81.72 kg

DRUGS (1)
  1. ANDROGEL STICK PACK 2.5G [Suspect]
     Indication: BLOOD TESTOSTERONE DECREASED
     Dates: start: 201202

REACTIONS (2)
  - Blood testosterone abnormal [Not Recovered/Not Resolved]
  - Blood testosterone increased [Not Recovered/Not Resolved]
